FAERS Safety Report 14955686 (Version 1)
Quarter: 2018Q3

REPORT INFORMATION
  Report Type: Spontaneous
  Country: US (occurrence: US)
  Receive Date: 20180531
  Receipt Date: 20180531
  Transmission Date: 20181010
  Serious: No
  Sender: FDA-Public Use
  Company Number: US-AUROBINDO-AUR-APU-2017-48355

PATIENT
  Age: 69 Year
  Sex: Female
  Weight: 172.8 kg

DRUGS (4)
  1. ONDANSETRON ORALLY DISINTEGRATING TABLETS USP 8 MG [Suspect]
     Active Substance: ONDANSETRON
     Indication: VOMITING
     Dosage: 8 MILLIGRAM, 3 TIMES A DAY
     Route: 048
     Dates: start: 20171211
  2. ONDANSETRON ORALLY DISINTEGRATING TABLETS USP 8 MG [Suspect]
     Active Substance: ONDANSETRON
     Indication: NAUSEA
  3. LORAZEPAM. [Concomitant]
     Active Substance: LORAZEPAM
     Indication: PRODUCT USED FOR UNKNOWN INDICATION
     Dosage: UNK
     Route: 065
  4. VICODIN [Concomitant]
     Active Substance: ACETAMINOPHEN\HYDROCODONE BITARTRATE
     Indication: PRODUCT USED FOR UNKNOWN INDICATION
     Dosage: UNK
     Route: 065

REACTIONS (3)
  - Nausea [Not Recovered/Not Resolved]
  - Vomiting [Not Recovered/Not Resolved]
  - Gastrooesophageal reflux disease [Not Recovered/Not Resolved]

NARRATIVE: CASE EVENT DATE: 20171222
